FAERS Safety Report 18620468 (Version 1)
Quarter: 2020Q4

REPORT INFORMATION
  Report Type: Spontaneous
  Country: BE (occurrence: BE)
  Receive Date: 20201215
  Receipt Date: 20201215
  Transmission Date: 20210114
  Serious: Yes (Other)
  Sender: FDA-Public Use
  Company Number: BE-ROCHE-2727307

PATIENT
  Age: 61 Year
  Sex: Female

DRUGS (3)
  1. ALECTINIB. [Suspect]
     Active Substance: ALECTINIB
     Indication: LUNG ADENOCARCINOMA
     Route: 065
  2. ALECTINIB. [Suspect]
     Active Substance: ALECTINIB
     Route: 065
  3. LORLATINIB [Suspect]
     Active Substance: LORLATINIB
     Indication: PRODUCT USED FOR UNKNOWN INDICATION
     Dosage: MNP, OD
     Route: 065
     Dates: start: 202007

REACTIONS (8)
  - Photosensitivity reaction [Unknown]
  - Papilloedema [Unknown]
  - Neuropathy peripheral [Unknown]
  - Dysphagia [Unknown]
  - Nausea [Unknown]
  - Visual impairment [Unknown]
  - Gastrointestinal toxicity [Unknown]
  - Nightmare [Unknown]

NARRATIVE: CASE EVENT DATE: 202008
